FAERS Safety Report 23956000 (Version 2)
Quarter: 2024Q2

REPORT INFORMATION
  Report Type: Spontaneous
  Country: US (occurrence: US)
  Receive Date: 20240610
  Receipt Date: 20240618
  Transmission Date: 20240715
  Serious: No
  Sender: FDA-Public Use
  Company Number: US-MACLEODS PHARMA-MAC2024047526

PATIENT

DRUGS (6)
  1. METFORMIN [Suspect]
     Active Substance: METFORMIN HYDROCHLORIDE
     Indication: Diabetes mellitus
     Dosage: (ZYDUS)1 PILL PER DAY (AFTER BREAKFAST AND DINNER)
     Route: 048
     Dates: end: 20240320
  2. EMPAGLIFLOZIN [Suspect]
     Active Substance: EMPAGLIFLOZIN
     Indication: Product used for unknown indication
     Dosage: MERCK, 03 YEARS AGO, AS SUGGESTED BY HIS CARDIOLOGIST
     Route: 048
  3. EZETIMIBE [Concomitant]
     Active Substance: EZETIMIBE
     Indication: Product used for unknown indication
     Route: 065
  4. TAMSULOSIN HYDROCHLORIDE [Concomitant]
     Active Substance: TAMSULOSIN HYDROCHLORIDE
     Indication: Product used for unknown indication
     Route: 065
  5. Valsartan tablets 80 mg [Concomitant]
     Indication: Blood pressure measurement
     Route: 065
  6. Pitavastatin tablets 4 mg [Concomitant]
     Indication: Blood pressure measurement
     Route: 065

REACTIONS (3)
  - Abnormal faeces [Recovered/Resolved]
  - Abdominal discomfort [Recovered/Resolved]
  - Glycosylated haemoglobin increased [Recovered/Resolved]
